FAERS Safety Report 6962837-4 (Version None)
Quarter: 2010Q3

REPORT INFORMATION
  Report Type: 
  Country: None (occurrence: None)
  Receive Date: 20100831
  Receipt Date: 20100827
  Transmission Date: 20110219
  Serious: Yes (Death)
  Sender: FDA-Public Use
  Company Number: WWISSUE-487

PATIENT
  Age: 51 Year
  Sex: Female

DRUGS (8)
  1. CARISOPRODOL TABLETS USP, 300MG/FOREST/WEST-WARD [Suspect]
  2. MALACIPAN [Concomitant]
  3. OXYCODONE [Concomitant]
  4. LORAZEPAM [Concomitant]
  5. DIAZEPAM [Concomitant]
  6. TEMAZEPAM [Concomitant]
  7. OXAZEPAM [Concomitant]
  8. PROMETHAZINE [Concomitant]

REACTIONS (3)
  - ALCOHOL USE [None]
  - COMPLETED SUICIDE [None]
  - DRUG TOXICITY [None]
